FAERS Safety Report 7683654-6 (Version None)
Quarter: 2011Q3

REPORT INFORMATION
  Report Type: 
  Country: None (occurrence: None)
  Receive Date: 20110815
  Receipt Date: 20110808
  Transmission Date: 20111222
  Serious: Yes (Hospitalization)
  Sender: FDA-Public Use
  Company Number: CZ-TEVA-295823ISR

PATIENT
  Age: 43 Year
  Sex: Female

DRUGS (5)
  1. METHYLPREDNISOLONE [Concomitant]
     Dates: start: 20090501, end: 20110401
  2. UNKNOWN INVESTIGATIONAL MEDICATION [Suspect]
     Dosage: 20 MILLIGRAM;
     Route: 048
     Dates: start: 20110326
  3. UNKNOWN INVESTIGATIONAL MEDICATION [Suspect]
     Indication: RHEUMATOID ARTHRITIS
     Dosage: 20 MILLIGRAM;
     Route: 048
     Dates: start: 20100921, end: 20110318
  4. METHOTREXATE [Suspect]
     Dates: start: 20100510, end: 20110316
  5. DESOGESTREL AND ETHINYL ESTRADIOL [Concomitant]
     Route: 048
     Dates: start: 19970101

REACTIONS (1)
  - CERVICAL DYSPLASIA [None]
